FAERS Safety Report 8346548 (Version 4)
Quarter: 2012Q4

REPORT INFORMATION
  Report Type: Report from Study
  Country: US (occurrence: US)
  Receive Date: 20120120
  Receipt Date: 20121102
  Transmission Date: 20130627
  Serious: Yes (Hospitalization)
  Sender: FDA-Public Use
  Company Number: US-ROCHE-GNE304497

PATIENT
  Age: 38 Year
  Sex: Female
  Weight: 84.44 kg

DRUGS (25)
  1. OMALIZUMAB [Suspect]
     Indication: ASTHMA
     Dosage: 375 mg, Q2W;Date of recennt dose:26/Jul/2012
     Route: 058
     Dates: start: 20060324
  2. PRENATAL VITAMIN [Concomitant]
     Indication: PREGNANCY
     Dosage: UNK
     Route: 065
  3. VENTOLIN [Concomitant]
     Indication: ASTHMA
     Dosage: UNK
     Route: 065
  4. XOPENEX [Concomitant]
     Indication: ASTHMA
     Dosage: UNK
     Route: 065
  5. ALLERGY SHOTS [Concomitant]
     Indication: HYPERSENSITIVITY
     Dosage: UNK
     Route: 065
  6. CLARITIN [Concomitant]
     Indication: HYPERSENSITIVITY
     Dosage: UNK
     Route: 065
  7. EXTRA STRENGTH TYLENOL HEADACHE PLUS [Concomitant]
     Indication: HEADACHE
     Dosage: UNK
     Route: 065
  8. ZOFRAN [Concomitant]
     Indication: NAUSEA
     Dosage: UNK
     Route: 065
  9. ZOFRAN [Concomitant]
     Indication: VOMITING
  10. ZOLOFT [Concomitant]
     Indication: ANXIETY
     Dosage: UNK
     Route: 065
  11. HYDROXYZINE [Concomitant]
     Indication: ANXIETY
     Dosage: UNK
     Route: 065
  12. HYDROXYZINE [Concomitant]
     Indication: INSOMNIA
  13. DIFLUCAN [Concomitant]
     Indication: FUNGAL INFECTION
  14. PEPCID [Concomitant]
     Indication: DYSPEPSIA
     Dosage: UNK
     Route: 065
  15. ZITHROMAX Z-PAK [Concomitant]
     Indication: BRONCHITIS
  16. PREDNISONE [Concomitant]
     Indication: ASTHMA
     Dosage: UNK
     Route: 065
  17. PREDNISONE [Concomitant]
     Indication: BRONCHITIS
  18. AUGMENTIN [Concomitant]
     Indication: SINUSITIS
  19. AUGMENTIN [Concomitant]
     Indication: OTITIS MEDIA
  20. ALDOMET [Concomitant]
     Indication: HYPERTENSION
     Dosage: UNK
     Route: 065
  21. QVAR [Concomitant]
     Indication: ASTHMA
     Dosage: UNK
     Route: 065
  22. LEXAPRO [Concomitant]
     Indication: ANXIETY
  23. LAMICTAL [Concomitant]
     Indication: ANXIETY
  24. NAPROXEN [Concomitant]
     Indication: PERICARDITIS
  25. PRILOSEC [Concomitant]

REACTIONS (2)
  - Polyhydramnios [Recovered/Resolved]
  - Exposure during pregnancy [Unknown]
